FAERS Safety Report 4928174-4 (Version None)
Quarter: 2006Q1

REPORT INFORMATION
  Report Type: 
  Country: None (occurrence: None)
  Receive Date: 20060223
  Receipt Date: 20060208
  Transmission Date: 20060701
  Serious: Yes (Death, Hospitalization, Disabling)
  Sender: FDA-Public Use
  Company Number: 2005-02565

PATIENT
  Age: 50 Year
  Sex: Female

DRUGS (1)
  1. VELCADE [Suspect]
     Indication: MULTIPLE MYELOMA
     Dosage: 2.00 MG, 2/WEEK, INTRAVNEOUS
     Route: 042
     Dates: start: 20050405, end: 20050703

REACTIONS (9)
  - ASTHENIA [None]
  - BONE PAIN [None]
  - DISEASE PROGRESSION [None]
  - DRUG TOXICITY [None]
  - DYSPNOEA [None]
  - MULTIPLE MYELOMA [None]
  - NAUSEA [None]
  - PULMONARY FIBROSIS [None]
  - PYREXIA [None]
